FAERS Safety Report 10143090 (Version 1)
Quarter: 2014Q2

REPORT INFORMATION
  Report Type: Spontaneous
  Country: US (occurrence: None)
  Receive Date: 20140428
  Receipt Date: 20140428
  Transmission Date: 20141212
  Serious: Yes (Hospitalization)
  Sender: FDA-Public Use
  Company Number: 153006

PATIENT
  Age: 65 Year
  Sex: Male

DRUGS (1)
  1. EPIRUBICIN HCL [Suspect]
     Indication: HEPATIC CANCER

REACTIONS (2)
  - Tuberculosis [None]
  - Joint tuberculosis [None]
